FAERS Safety Report 23066719 (Version 1)
Quarter: 2023Q4

REPORT INFORMATION
  Report Type: Report from Study
  Country: US (occurrence: US)
  Receive Date: 20231016
  Receipt Date: 20231016
  Transmission Date: 20240110
  Serious: Yes (Other)
  Sender: FDA-Public Use
  Company Number: US-ABBVIE-5449492

PATIENT
  Age: 84 Year
  Sex: Male
  Weight: 96 kg

DRUGS (3)
  1. RINVOQ [Suspect]
     Active Substance: UPADACITINIB
     Indication: Rheumatoid arthritis
     Route: 048
     Dates: start: 20201013
  2. MODERNA COVID-19 VACCINE [Concomitant]
     Active Substance: ELASOMERAN
     Indication: COVID-19 immunisation
     Dosage: DOSE 1?FREQUENCY: ONE IN ONCE
     Route: 030
     Dates: start: 20210304, end: 20210304
  3. MODERNA COVID-19 VACCINE [Concomitant]
     Active Substance: ELASOMERAN
     Indication: COVID-19 immunisation
     Dosage: DOSE 1?FREQUENCY: ONE IN ONCE
     Route: 030
     Dates: start: 20210401, end: 20210401

REACTIONS (1)
  - Squamous cell carcinoma of skin [Recovered/Resolved]
